FAERS Safety Report 8719616 (Version 3)
Quarter: 2012Q4

REPORT INFORMATION
  Report Type: 
  Country: US (occurrence: US)
  Receive Date: 20120813
  Receipt Date: 20121004
  Transmission Date: 20130627
  Serious: Yes (Other)
  Sender: FDA-Public Use
  Company Number: US-JNJFOC-20120803762

PATIENT
  Age: 41 None
  Sex: Male
  Weight: 95.26 kg

DRUGS (4)
  1. REMICADE [Suspect]
     Indication: PSORIASIS
     Dosage: once every 6 to 8 week
     Route: 042
     Dates: start: 200808
  2. MOTRIN [Suspect]
     Indication: PRODUCT USED FOR UNKNOWN INDICATION
     Route: 048
  3. ACETAMINOPHEN [Concomitant]
     Indication: PREMEDICATION
     Route: 065
     Dates: start: 200808
  4. LISINOPRIL [Concomitant]
     Route: 048
     Dates: start: 20120821

REACTIONS (6)
  - IgA nephropathy [Not Recovered/Not Resolved]
  - Proteinuria [Unknown]
  - Haematuria [Unknown]
  - Hypotension [Unknown]
  - Antinuclear antibody positive [Unknown]
  - Adverse event [Unknown]
